FAERS Safety Report 14235843 (Version 1)
Quarter: 2017Q4

REPORT INFORMATION
  Report Type: Report from Study
  Country: US (occurrence: US)
  Receive Date: 20171129
  Receipt Date: 20171129
  Transmission Date: 20180321
  Serious: Yes (Hospitalization)
  Sender: FDA-Public Use
  Company Number: US-PFIZER INC-2017507161

PATIENT
  Age: 77 Year
  Sex: Male
  Weight: 75 kg

DRUGS (8)
  1. TRIAMCINOLONE [Concomitant]
     Active Substance: TRIAMCINOLONE
  2. CARDURA [Suspect]
     Active Substance: DOXAZOSIN MESYLATE
     Indication: BLOOD PRESSURE ABNORMAL
     Dosage: UNK
  3. RUXOLITINIB [Suspect]
     Active Substance: RUXOLITINIB
     Dosage: 20 MG, 2X/DAY
     Route: 048
     Dates: start: 20150714
  4. PROSCAR [Concomitant]
     Active Substance: FINASTERIDE
  5. RUXOLITINIB [Suspect]
     Active Substance: RUXOLITINIB
     Indication: PERIPHERAL T-CELL LYMPHOMA UNSPECIFIED
     Dosage: 15 MG, 2X/DAY
     Route: 048
     Dates: start: 20150520, end: 20150713
  6. CLOBETASOL [Concomitant]
     Active Substance: CLOBETASOL
  7. TYLENOL [Concomitant]
     Active Substance: ACETAMINOPHEN
  8. NORVASC [Suspect]
     Active Substance: AMLODIPINE BESYLATE
     Indication: BLOOD PRESSURE ABNORMAL
     Dosage: 2.5 MG, UNK

REACTIONS (5)
  - Hyponatraemia [Recovered/Resolved]
  - Limb injury [Recovering/Resolving]
  - Bacteraemia [Recovered/Resolved]
  - Fall [Recovered/Resolved]
  - Blood pressure orthostatic abnormal [Recovered/Resolved]

NARRATIVE: CASE EVENT DATE: 20150820
